FAERS Safety Report 5669183-X (Version None)
Quarter: 2008Q1

REPORT INFORMATION
  Report Type: 
  Country: None (occurrence: None)
  Receive Date: 20080317
  Receipt Date: 20080317
  Transmission Date: 20080703
  Serious: Yes (Other)
  Sender: FDA-Public Use
  Company Number: None

PATIENT
  Age: 42 Year
  Sex: Female
  Weight: 73.4827 kg

DRUGS (2)
  1. HEPARIN [Suspect]
     Indication: ANTICOAGULANT THERAPY
     Dosage: 5,000 ML 2X/DAY SQ
     Route: 058
     Dates: start: 20080115, end: 20080115
  2. HEPARIN [Suspect]
     Indication: COMPLICATION OF PREGNANCY
     Dosage: 5,000 ML 2X/DAY SQ
     Route: 058
     Dates: start: 20080115, end: 20080115

REACTIONS (8)
  - DIZZINESS [None]
  - DRUG EXPOSURE DURING PREGNANCY [None]
  - DYSPNOEA [None]
  - FEAR [None]
  - MALAISE [None]
  - NAUSEA [None]
  - PALPITATIONS [None]
  - SWOLLEN TONGUE [None]
